FAERS Safety Report 8612323-0 (Version None)
Quarter: 2012Q3

REPORT INFORMATION
  Report Type: 
  Country: None (occurrence: None)
  Receive Date: 20120822
  Receipt Date: 20120815
  Transmission Date: 20120928
  Serious: Yes (Other)
  Sender: FDA-Public Use
  Company Number: US-BAXTER-2012BAX014874

PATIENT
  Age: 57 Year
  Sex: Female

DRUGS (7)
  1. RITUXIMAB [Suspect]
     Indication: T-CELL LYMPHOMA
     Route: 042
  2. TACROLIMUS [Concomitant]
     Indication: STIFF PERSON SYNDROME
  3. AZATHIOPRINE SODIUM [Concomitant]
     Indication: STIFF PERSON SYNDROME
  4. BEXAROTENE [Concomitant]
     Indication: STIFF PERSON SYNDROME
  5. ALEMTUZUMAB [Concomitant]
     Indication: STIFF PERSON SYNDROME
  6. ALEMTUZUMAB [Concomitant]
  7. CYTOXAN [Suspect]
     Indication: T-CELL LYMPHOMA

REACTIONS (1)
  - HYPOGAMMAGLOBULINAEMIA [None]
